FAERS Safety Report 8601821 (Version 2)
Quarter: 2012Q4

REPORT INFORMATION
  Report Type: Report from Study
  Country: DE (occurrence: DE)
  Receive Date: 20120606
  Receipt Date: 20121011
  Transmission Date: 20130627
  Serious: Yes (Other)
  Sender: FDA-Public Use
  Company Number: DE-TEVA-341358USA

PATIENT
  Sex: Female

DRUGS (3)
  1. TREANDA [Suspect]
     Route: 042
     Dates: end: 20120504
  2. ONDANSETRON [Concomitant]
     Route: 042
     Dates: start: 20120504
  3. DEXAMETHASONE [Concomitant]
     Route: 042
     Dates: start: 20120504

REACTIONS (2)
  - Acute coronary syndrome [Recovered/Resolved]
  - Myocarditis [Recovered/Resolved]
